FAERS Safety Report 6558918-X (Version None)
Quarter: 2010Q1

REPORT INFORMATION
  Report Type: 
  Country: None (occurrence: None)
  Receive Date: 20100129
  Receipt Date: 20100119
  Transmission Date: 20100710
  Serious: Yes (Other)
  Sender: FDA-Public Use
  Company Number: CN-PFIZER INC-2010006647

PATIENT
  Age: 18 Month
  Sex: Female

DRUGS (1)
  1. ZELDOX [Suspect]
     Dosage: 80 MG, SINGLE
     Route: 048
     Dates: start: 20100117, end: 20100117

REACTIONS (1)
  - ACCIDENTAL DRUG INTAKE BY CHILD [None]
